FAERS Safety Report 6464716-8 (Version None)
Quarter: 2009Q4

REPORT INFORMATION
  Report Type: 
  Country: None (occurrence: None)
  Receive Date: 20091124
  Receipt Date: 20091117
  Transmission Date: 20100525
  Serious: Yes (Hospitalization)
  Sender: FDA-Public Use
  Company Number: 2009025985

PATIENT
  Age: 60 Year
  Sex: Female

DRUGS (10)
  1. TREANDA [Suspect]
     Indication: NON-HODGKIN'S LYMPHOMA
     Dosage: (50 MG,QD),INTRAVENOUS
     Route: 042
     Dates: start: 20091103, end: 20091105
  2. GLIMEPIRIDE [Concomitant]
  3. RITUXAN [Concomitant]
  4. GLUCOPHAGE [Concomitant]
  5. EFFEXOR [Concomitant]
  6. ENALAPRIL MALEATE [Concomitant]
  7. LANOXIN [Concomitant]
  8. LASIX [Concomitant]
  9. SPIRONOLACTONE [Concomitant]
  10. NOVOLOG INSULIN(INSULIN ASPART) [Concomitant]

REACTIONS (3)
  - ANAEMIA HAEMOLYTIC AUTOIMMUNE [None]
  - DYSPNOEA [None]
  - MUSCULOSKELETAL PAIN [None]
